FAERS Safety Report 18935315 (Version 1)
Quarter: 2021Q1

REPORT INFORMATION
  Report Type: Report from Study
  Country: US (occurrence: US)
  Receive Date: 20210224
  Receipt Date: 20210224
  Transmission Date: 20210420
  Serious: Yes (Other)
  Sender: FDA-Public Use
  Company Number: US-OTSUKA-2021_005774

PATIENT
  Age: 26 Year
  Sex: Female

DRUGS (5)
  1. LITHIUM. [Suspect]
     Active Substance: LITHIUM
     Indication: BIPOLAR DISORDER
     Dosage: UNK
     Route: 065
  2. ARIPIPRAZOLE. [Suspect]
     Active Substance: ARIPIPRAZOLE
     Indication: PRODUCT USED FOR UNKNOWN INDICATION
     Dosage: UNK (3?10 MG)
     Route: 065
  3. VISTARIL [Suspect]
     Active Substance: HYDROXYZINE PAMOATE
     Indication: DEPRESSION
     Dosage: UNK
     Route: 065
  4. SUMATRIPTAN. [Suspect]
     Active Substance: SUMATRIPTAN
     Indication: CLUSTER HEADACHE
     Dosage: UNK
     Route: 065
  5. SYNTHROID [Suspect]
     Active Substance: LEVOTHYROXINE SODIUM
     Indication: HYPOTHYROIDISM
     Dosage: UNK
     Route: 065

REACTIONS (3)
  - Hyperthyroidism [Unknown]
  - Hypothyroidism [Unknown]
  - Maternal exposure during pregnancy [Unknown]

NARRATIVE: CASE EVENT DATE: 20190405
